FAERS Safety Report 15083228 (Version 6)
Quarter: 2020Q2

REPORT INFORMATION
  Report Type: Report from Study
  Country: US (occurrence: US)
  Receive Date: 20180628
  Receipt Date: 20200619
  Transmission Date: 20200713
  Serious: Yes (Hospitalization, Other)
  Sender: FDA-Public Use
  Company Number: PHEH2018US024906

PATIENT
  Sex: Male

DRUGS (1)
  1. COSENTYX [Suspect]
     Active Substance: SECUKINUMAB
     Indication: PRODUCT USED FOR UNKNOWN INDICATION
     Dosage: UNK
     Route: 058

REACTIONS (12)
  - Systemic lupus erythematosus [Unknown]
  - Lower limb fracture [Unknown]
  - Stress [Unknown]
  - Parkinson^s disease [Unknown]
  - Myocardial infarction [Unknown]
  - Foot fracture [Unknown]
  - Gastrointestinal haemorrhage [Unknown]
  - Psoriatic arthropathy [Unknown]
  - Brain injury [Unknown]
  - Tremor [Unknown]
  - Head and neck cancer stage IV [Recovering/Resolving]
  - Multiple sclerosis [Unknown]

NARRATIVE: CASE EVENT DATE: 2020
